FAERS Safety Report 11439542 (Version 1)
Quarter: 2015Q3

REPORT INFORMATION
  Report Type: Spontaneous
  Country: DE (occurrence: DE)
  Receive Date: 20150901
  Receipt Date: 20150901
  Transmission Date: 20151125
  Serious: Yes (Life-Threatening)
  Sender: FDA-Public Use
  Company Number: DE-ACCORD-033343

PATIENT
  Age: 67 Year
  Sex: Male
  Weight: 87 kg

DRUGS (4)
  1. IDARUBICIN [Suspect]
     Active Substance: IDARUBICIN
     Indication: ACUTE PROMYELOCYTIC LEUKAEMIA
     Dates: start: 2009, end: 2010
  2. TRETINOIN/TRETINOIN TOCOFERIL [Suspect]
     Active Substance: TRETINOIN
     Indication: ACUTE PROMYELOCYTIC LEUKAEMIA
     Dates: start: 2009, end: 2010
  3. MERCAPTOPURINE. [Suspect]
     Active Substance: MERCAPTOPURINE
     Indication: ACUTE PROMYELOCYTIC LEUKAEMIA
     Dates: start: 2010, end: 2012
  4. METHOTREXATE [Suspect]
     Active Substance: METHOTREXATE
     Indication: ACUTE PROMYELOCYTIC LEUKAEMIA
     Dates: start: 2010, end: 2012

REACTIONS (2)
  - Aplastic anaemia [Unknown]
  - Myelodysplastic syndrome [Unknown]

NARRATIVE: CASE EVENT DATE: 201504
